FAERS Safety Report 14875399 (Version 1)
Quarter: 2018Q2

REPORT INFORMATION
  Report Type: Spontaneous
  Country: GB (occurrence: GB)
  Receive Date: 20180510
  Receipt Date: 20180510
  Transmission Date: 20180711
  Serious: Yes (Other)
  Sender: FDA-Public Use
  Company Number: GB-AUROBINDO-AUR-APL-2018-024971

PATIENT
  Age: 51 Year
  Sex: Female

DRUGS (1)
  1. ARIPIPRAZOLE. [Suspect]
     Active Substance: ARIPIPRAZOLE
     Indication: HYPOMANIA
     Dosage: 5 MILLIGRAM, ONCE A DAY
     Route: 048
     Dates: start: 20180321, end: 20180403

REACTIONS (1)
  - Gambling disorder [Unknown]
